FAERS Safety Report 6344010-6 (Version None)
Quarter: 2009Q3

REPORT INFORMATION
  Report Type: 
  Country: None (occurrence: None)
  Receive Date: 20090908
  Receipt Date: 20090826
  Transmission Date: 20100115
  Serious: Yes (Death)
  Sender: FDA-Public Use
  Company Number: US-PFIZER INC-2009242653

PATIENT
  Age: 50 Year
  Sex: Male
  Weight: 60 kg

DRUGS (16)
  1. VISTARIL [Suspect]
     Indication: ANXIOLYTIC THERAPY
     Dosage: UNK
  2. XANAX [Suspect]
  3. ZOLOFT [Suspect]
     Indication: DEPRESSION
  4. MIDAZOLAM HCL [Suspect]
     Indication: INSOMNIA
     Dosage: UNK
     Dates: start: 20090622, end: 20090624
  5. LIDOCAINE 2% [Suspect]
     Indication: INSOMNIA
     Dosage: UNK
     Route: 041
     Dates: start: 20090624, end: 20090624
  6. DEMEROL [Suspect]
  7. DILAUDID [Suspect]
  8. VICODIN [Suspect]
  9. PAXIL [Suspect]
     Indication: DEPRESSION
  10. SOMA [Suspect]
     Indication: MUSCLE RELAXANT THERAPY
  11. PRILOSEC [Suspect]
     Indication: GASTRIC ULCER
  12. DIPRIVAN [Suspect]
     Indication: INSOMNIA
     Dosage: 50 MG, 1X/DAY
     Dates: end: 20090621
  13. DIPRIVAN [Suspect]
     Dosage: 25 MG, SINGLE
     Dates: start: 20090622, end: 20090622
  14. DIPRIVAN [Suspect]
     Dosage: 25 MG, SINGLE
     Route: 041
     Dates: start: 20090624, end: 20090624
  15. LORAZEPAM [Suspect]
     Indication: INSOMNIA
     Dosage: UNK
     Dates: start: 20090622, end: 20090624
  16. VALIUM [Suspect]
     Indication: INSOMNIA
     Dosage: UNK
     Dates: end: 20090624

REACTIONS (3)
  - DRUG DEPENDENCE [None]
  - DRUG TOXICITY [None]
  - RESPIRATORY ARREST [None]
